FAERS Safety Report 10432533 (Version 1)
Quarter: 2014Q3

REPORT INFORMATION
  Report Type: Spontaneous
  Country: US (occurrence: None)
  Receive Date: 20140815
  Receipt Date: 20140815
  Transmission Date: 20150326
  Serious: No
  Sender: FDA-Public Use
  Company Number: A-US2014-100830

PATIENT
  Age: 45 Year
  Sex: Female

DRUGS (5)
  1. RIOCIGUAT [Concomitant]
     Active Substance: RIOCIGUAT
  2. PLAQUENIL (HYDROXYCHLOROQUINE PHOSPHATE) [Concomitant]
     Active Substance: HYDROXYCHLOROQUINE SULFATE
  3. OPSUMIT [Suspect]
     Active Substance: MACITENTAN
     Indication: PULMONARY ARTERIAL HYPERTENSION
     Route: 048
     Dates: start: 20140429
  4. TUMS [Concomitant]
     Active Substance: CALCIUM CARBONATE
  5. ASPIRIN (ACETYLSALICYLIC ACID) [Concomitant]
     Active Substance: ASPIRIN

REACTIONS (1)
  - Haematuria [None]

NARRATIVE: CASE EVENT DATE: 20140610
